FAERS Safety Report 4487590-8 (Version None)
Quarter: 2004Q4

REPORT INFORMATION
  Report Type: 
  Country: None (occurrence: None)
  Receive Date: 20041027
  Receipt Date: 20041027
  Transmission Date: 20050328
  Serious: No
  Sender: FDA-Public Use
  Company Number: None

PATIENT
  Age: 56 Year
  Sex: Male
  Weight: 120 kg

DRUGS (11)
  1. LINEZOLID   600MG   PFIZER [Suspect]
     Indication: CELLULITIS
     Dosage: 600MG  BID  ORAL
     Route: 048
     Dates: start: 20040827, end: 20040921
  2. DIGOXIN [Concomitant]
  3. LASIX [Concomitant]
  4. DILTIAZEM [Concomitant]
  5. PREDNISONE [Concomitant]
  6. HYDROCORTISONE [Concomitant]
  7. ASPIRIN [Concomitant]
  8. PANTOPRAZOLE [Concomitant]
  9. NYSTATIN [Concomitant]
  10. ALBUTEROL [Concomitant]
  11. IPRATROPIUM BROMIDE [Concomitant]

REACTIONS (1)
  - PLATELET COUNT DECREASED [None]
